FAERS Safety Report 13518287 (Version 2)
Quarter: 2017Q2

REPORT INFORMATION
  Report Type: Spontaneous
  Country: JP (occurrence: JP)
  Receive Date: 20170505
  Receipt Date: 20170525
  Transmission Date: 20170830
  Serious: Yes (Death, Hospitalization, Other)
  Sender: FDA-Public Use
  Company Number: JP-ASTRAZENECA-2017SE28877

PATIENT
  Age: 82 Year
  Sex: Male
  Weight: 50 kg

DRUGS (12)
  1. CUBICIN [Suspect]
     Active Substance: DAPTOMYCIN
     Indication: STAPHYLOCOCCAL INFECTION
     Dosage: 6.0MG/KG UNKNOWN
     Route: 041
     Dates: start: 20170204, end: 20170205
  2. LASIX [Concomitant]
     Active Substance: FUROSEMIDE
     Dates: start: 20170202, end: 20170209
  3. ARTIST [Concomitant]
     Active Substance: CARVEDILOL
     Dates: start: 20140416, end: 20170221
  4. DOBUPUM [Concomitant]
     Active Substance: DOBUTAMINE HYDROCHLORIDE
     Dates: start: 20170202, end: 20170218
  5. WARFARIN [Concomitant]
     Active Substance: WARFARIN
     Dates: start: 20160330, end: 20170218
  6. MEDROL [Suspect]
     Active Substance: METHYLPREDNISOLONE
     Indication: MIXED CONNECTIVE TISSUE DISEASE
     Route: 048
     Dates: start: 20170204, end: 20170208
  7. ZOSYN [Suspect]
     Active Substance: PIPERACILLIN SODIUM\TAZOBACTAM SODIUM
     Indication: SEPSIS
     Dosage: 2.25G/DOSE X 4
     Route: 042
     Dates: start: 20170202, end: 20170207
  8. CRESTOR [Suspect]
     Active Substance: ROSUVASTATIN CALCIUM
     Indication: HYPERLIPIDAEMIA
     Route: 048
     Dates: start: 20161231, end: 20170204
  9. PRECEDEX [Suspect]
     Active Substance: DEXMEDETOMIDINE HYDROCHLORIDE
     Indication: SEDATION
     Dosage: 0.49/MCG/DOSE/KG/MIN
     Route: 042
     Dates: start: 20170204, end: 20170211
  10. NEXIUM [Suspect]
     Active Substance: ESOMEPRAZOLE MAGNESIUM
     Indication: PROPHYLAXIS AGAINST GASTROINTESTINAL ULCER
     Route: 048
     Dates: start: 20170202, end: 20170205
  11. HEPARIN SODIUM. [Concomitant]
     Active Substance: HEPARIN SODIUM
     Dates: start: 20170204, end: 20170209
  12. HANP [Concomitant]
     Active Substance: CARPERITIDE
     Dates: start: 20170204, end: 20170210

REACTIONS (3)
  - Rhabdomyolysis [Recovering/Resolving]
  - Cardiac failure acute [Fatal]
  - Renal impairment [Unknown]

NARRATIVE: CASE EVENT DATE: 20170204
